FAERS Safety Report 5466793-X (Version None)
Quarter: 2007Q3

REPORT INFORMATION
  Report Type: 
  Country: None (occurrence: None)
  Receive Date: 20070925
  Receipt Date: 20070913
  Transmission Date: 20080115
  Serious: Yes (Hospitalization, Other)
  Sender: FDA-Public Use
  Company Number: US-JNJFOC-20070903020

PATIENT
  Age: 48 Year
  Sex: Female
  Weight: 63.96 kg

DRUGS (11)
  1. TOPAMAX [Suspect]
     Dosage: TWO 200 MG TABLETS IN THE EVENING
     Route: 048
  2. TOPAMAX [Suspect]
     Dosage: 400 MG ONCE DAILY; 200 MG ONCE DAILY
     Route: 048
  3. TOPAMAX [Suspect]
     Route: 048
  4. TOPAMAX [Suspect]
     Dosage: 200 MG TABLETS FOUR TIMES DAILY
     Route: 048
  5. TOPAMAX [Suspect]
     Indication: BIPOLAR DISORDER
     Route: 048
  6. COPAXONE [Concomitant]
     Indication: MULTIPLE SCLEROSIS
     Route: 050
  7. TRAZODONE HCL [Concomitant]
     Indication: SLEEP DISORDER
     Dosage: 2-3 DAILY
  8. NEURONTIN [Concomitant]
     Indication: PAIN
  9. NEURONTIN [Concomitant]
     Indication: BIPOLAR DISORDER
  10. POTASSIUM CITRATE [Concomitant]
     Indication: RENAL DISORDER
  11. UNSPECIFIED MEDICATION [Concomitant]
     Indication: BLOOD CHOLESTEROL

REACTIONS (26)
  - BALANCE DISORDER [None]
  - BLINDNESS [None]
  - BLOOD CHOLESTEROL INCREASED [None]
  - BLOOD GLUCOSE INCREASED [None]
  - BLOOD TRIGLYCERIDES INCREASED [None]
  - CITRIC ACID URINE DECREASED [None]
  - DYSPHAGIA [None]
  - DYSPNOEA [None]
  - GASTRIC ULCER [None]
  - HEART RATE INCREASED [None]
  - INSOMNIA [None]
  - LARYNGEAL ULCERATION [None]
  - LOSS OF CONSCIOUSNESS [None]
  - MULTIPLE SCLEROSIS [None]
  - MYELITIS TRANSVERSE [None]
  - NAUSEA [None]
  - NEPHROLITHIASIS [None]
  - NERVOUS SYSTEM DISORDER [None]
  - OSTEOMALACIA [None]
  - RENAL TUBULAR ACIDOSIS [None]
  - URINARY TRACT INFECTION [None]
  - URINE CALCIUM DECREASED [None]
  - URTICARIA [None]
  - VITAMIN D DECREASED [None]
  - WEIGHT DECREASED [None]
  - WEIGHT INCREASED [None]
